FAERS Safety Report 7584745-0 (Version None)
Quarter: 2011Q2

REPORT INFORMATION
  Report Type: 
  Country: None (occurrence: None)
  Receive Date: 20110630
  Receipt Date: 20110620
  Transmission Date: 20111010
  Serious: Yes (Hospitalization, Other)
  Sender: FDA-Public Use
  Company Number: PHHY2011DE55031

PATIENT
  Sex: Female

DRUGS (3)
  1. ZOMETA [Suspect]
     Dosage: 4 MG/ 5ML, EVERY 6 MONTHS
     Route: 042
     Dates: start: 20110501
  2. ZOMETA [Suspect]
     Indication: BREAST CANCER
     Dosage: 4 MG/ 5ML, EVERY 6 MONTHS
     Route: 042
     Dates: start: 20100601
  3. ZOMETA [Suspect]
     Dosage: 4 MG/ 5ML, EVERY 6 MONTHS
     Route: 042
     Dates: start: 20101101

REACTIONS (8)
  - NEOPLASM MALIGNANT [None]
  - FATIGUE [None]
  - ILEUS [None]
  - DECREASED APPETITE [None]
  - METASTASES TO SMALL INTESTINE [None]
  - VOMITING [None]
  - NEOPLASM PROGRESSION [None]
  - CONSTIPATION [None]
